FAERS Safety Report 9316304 (Version 1)
Quarter: 2013Q2

REPORT INFORMATION
  Report Type: Spontaneous
  Country: GB (occurrence: None)
  Receive Date: 20130522
  Receipt Date: 20130522
  Transmission Date: 20140414
  Serious: Yes (Other)
  Sender: FDA-Public Use
  Company Number: 2013-01118

PATIENT
  Age: 72 Year
  Sex: Female
  Weight: 85 kg

DRUGS (1)
  1. LOSARTAN/HYDROCHLOROTHIAZIDE [Suspect]
     Indication: HYPERTENSION
     Dosage: 50/12.5 MG (UNKNOWN,UNKNOWN) UNKNONWN
     Dates: start: 201203, end: 201212

REACTIONS (3)
  - Syncope [None]
  - Facial bones fracture [None]
  - Facial bones fracture [None]
